FAERS Safety Report 16706151 (Version 1)
Quarter: 2019Q3

REPORT INFORMATION
  Report Type: Spontaneous
  Country: US (occurrence: US)
  Receive Date: 20190628
  Receipt Date: 20190628
  Transmission Date: 20191004
  Serious: No
  Sender: FDA-Public Use
  Company Number: None

PATIENT
  Age: 63 Year
  Sex: Male

DRUGS (1)
  1. AUSTEDO [Suspect]
     Active Substance: DEUTETRABENAZINE
     Indication: HUNTINGTON^S DISEASE
     Dates: start: 201807

REACTIONS (4)
  - Wrong technique in product usage process [None]
  - Tardive dyskinesia [None]
  - Insurance issue [None]
  - Product availability issue [None]

NARRATIVE: CASE EVENT DATE: 20190626
